FAERS Safety Report 12241127 (Version 1)
Quarter: 2016Q2

REPORT INFORMATION
  Report Type: Spontaneous
  Country: US (occurrence: None)
  Receive Date: 20160405
  Receipt Date: 20160405
  Transmission Date: 20160815
  Serious: Yes (Other)
  Sender: FDA-Public Use
  Company Number: None

PATIENT
  Age: 66 Year
  Sex: Female
  Weight: 49.44 kg

DRUGS (5)
  1. VAGIFEM [Concomitant]
     Active Substance: ESTRADIOL
  2. KIRKLAND SIGNATURE ALLERCLEAR [Suspect]
     Active Substance: LORATADINE
     Indication: SEASONAL ALLERGY
     Dosage: 365 TABLET(S) ONCE A DAY TAKEN BY MOUTH
     Route: 048
     Dates: start: 20100301, end: 20150329
  3. CALCIUM CITRATE WITH D [Concomitant]
  4. ESTRACE [Concomitant]
     Active Substance: ESTRADIOL
  5. MULTI VITAMIN [Concomitant]
     Active Substance: VITAMINS

REACTIONS (4)
  - Erythema multiforme [None]
  - Rash [None]
  - Stevens-Johnson syndrome [None]
  - Therapy cessation [None]

NARRATIVE: CASE EVENT DATE: 20150329
